FAERS Safety Report 18305712 (Version 1)
Quarter: 2020Q3

REPORT INFORMATION
  Report Type: Spontaneous
  Country: US (occurrence: US)
  Receive Date: 20200923
  Receipt Date: 20200923
  Transmission Date: 20201103
  Serious: Yes (Hospitalization)
  Sender: FDA-Public Use
  Company Number: None

PATIENT
  Age: 66 Year
  Sex: Male

DRUGS (1)
  1. VEDOLIZUMAB (VEDOLIZUMAB 300MG/VIL INJ) [Suspect]
     Active Substance: VEDOLIZUMAB
     Indication: CROHN^S DISEASE
     Dosage: ?          OTHER ROUTE:IV?
     Dates: start: 20190910, end: 20191105

REACTIONS (12)
  - Therapy interrupted [None]
  - Renal cell carcinoma [None]
  - Crohn^s disease [None]
  - Pyoderma gangrenosum [None]
  - Leukocytosis [None]
  - Clostridium difficile infection [None]
  - Osteonecrosis [None]
  - Diarrhoea [None]
  - Pulmonary embolism [None]
  - Red blood cell sedimentation rate increased [None]
  - Colitis [None]
  - Renal mass [None]

NARRATIVE: CASE EVENT DATE: 20200817
